FAERS Safety Report 5117141-6 (Version None)
Quarter: 2006Q3

REPORT INFORMATION
  Report Type: 
  Country: None (occurrence: None)
  Receive Date: 20060706
  Receipt Date: 20060517
  Transmission Date: 20061208
  Serious: Yes (Other)
  Sender: FDA-Public Use
  Company Number: 2389

PATIENT
  Age: 53 Year
  Sex: Female

DRUGS (1)
  1. DONNATAL [Suspect]

REACTIONS (1)
  - DRUG INEFFECTIVE [None]
